FAERS Safety Report 9250328 (Version 2)
Quarter: 2013Q2

REPORT INFORMATION
  Report Type: Spontaneous
  Country: US (occurrence: US)
  Receive Date: 20130424
  Receipt Date: 20130528
  Transmission Date: 20140414
  Serious: No
  Sender: FDA-Public Use
  Company Number: US-009507513-1304USA007870

PATIENT
  Age: 54 Year
  Sex: Male
  Weight: 58.96 kg

DRUGS (5)
  1. VICTRELIS [Suspect]
     Dosage: 800 MG, TID
     Route: 048
  2. REBETOL [Suspect]
     Dosage: UNK
     Route: 048
  3. PEGASYS [Suspect]
  4. AMBIEN [Concomitant]
     Indication: INSOMNIA
     Dosage: UNK, PRN
  5. OMEPRAZOLE [Concomitant]

REACTIONS (9)
  - Rash pruritic [Unknown]
  - Confusional state [Unknown]
  - Irritability [Unknown]
  - Insomnia [Unknown]
  - Rash [Not Recovered/Not Resolved]
  - Dyspepsia [Unknown]
  - Diarrhoea [Unknown]
  - Polyuria [Unknown]
  - Mood altered [Unknown]
